FAERS Safety Report 5223016-4 (Version None)
Quarter: 2007Q1

REPORT INFORMATION
  Report Type: 
  Country: None (occurrence: None)
  Receive Date: 20070129
  Receipt Date: 20070117
  Transmission Date: 20070707
  Serious: Yes (Death)
  Sender: FDA-Public Use
  Company Number: GB-PFIZER INC-2006148175

PATIENT
  Age: 81 Year
  Sex: Female
  Weight: 65 kg

DRUGS (10)
  1. LINEZOLID SOLUTION, STERILE [Suspect]
     Indication: STAPHYLOCOCCAL INFECTION
     Route: 042
     Dates: start: 20060911, end: 20060913
  2. LINEZOLID TABLET [Suspect]
     Indication: STAPHYLOCOCCAL INFECTION
     Route: 048
     Dates: start: 20060914, end: 20061002
  3. BISOPROLOL FUMARATE [Concomitant]
     Route: 048
  4. DIGOXIN [Concomitant]
     Route: 048
  5. FUROSEMIDE [Concomitant]
     Route: 048
  6. LISINOPRIL [Concomitant]
     Route: 048
     Dates: end: 20060914
  7. METFORMIN HCL [Concomitant]
     Route: 048
  8. RANITIDINE [Concomitant]
     Route: 048
  9. SIMVASTATIN [Concomitant]
     Route: 048
  10. WARFARIN SODIUM [Concomitant]
     Route: 048
     Dates: end: 20060920

REACTIONS (3)
  - CARDIAC FAILURE [None]
  - GENERAL PHYSICAL HEALTH DETERIORATION [None]
  - PLATELET COUNT DECREASED [None]
